FAERS Safety Report 7245955-5 (Version None)
Quarter: 2011Q1

REPORT INFORMATION
  Report Type: 
  Country: None (occurrence: None)
  Receive Date: 20110126
  Receipt Date: 20101217
  Transmission Date: 20110831
  Serious: Yes (Other)
  Sender: FDA-Public Use
  Company Number: US-BAYER-201034402NA

PATIENT
  Sex: Female

DRUGS (2)
  1. LEVORA 0.15/30-21 [Concomitant]
     Dosage: UNK
     Dates: start: 20050801, end: 20070601
  2. YAZ [Suspect]
     Indication: PRODUCT USED FOR UNKNOWN INDICATION
     Route: 048
     Dates: start: 20081001

REACTIONS (3)
  - CARDIAC ARREST [None]
  - PULMONARY EMBOLISM [None]
  - ARRHYTHMIA [None]
